FAERS Safety Report 4750120-7 (Version None)
Quarter: 2005Q3

REPORT INFORMATION
  Report Type: 
  Country: None (occurrence: None)
  Receive Date: 20050819
  Receipt Date: 20050819
  Transmission Date: 20060218
  Serious: Yes (Death, Hospitalization)
  Sender: FDA-Public Use
  Company Number: None

PATIENT
  Sex: Female
  Weight: 106 kg

DRUGS (25)
  1. CYCLOPHOSPHAMIDE [Suspect]
     Indication: ACUTE LYMPHOCYTIC LEUKAEMIA
     Dosage: SEE IMAGE
     Route: 042
     Dates: start: 20040928
  2. ALLOPURINOL [Suspect]
     Dosage: SEE IMAGE
     Route: 048
     Dates: start: 20040928
  3. DAUNORUBICIN HCL [Suspect]
     Dosage: SEE IMAGE
     Route: 042
     Dates: start: 20040928, end: 20040930
  4. VINCRISTINE [Suspect]
     Dosage: SEE IMAGE
     Route: 042
     Dates: start: 20040928, end: 20041005
  5. DEXAMETHASONE [Suspect]
     Dosage: SEE IMAGE
     Route: 048
     Dates: start: 20040928
  6. L-ASPARAGINASE [Suspect]
     Dosage: SEE IMAGE
     Route: 058
     Dates: start: 20040928, end: 20041005
  7. G-CSF [Suspect]
     Dosage: SEE IMAGE
     Route: 058
     Dates: start: 20050928
  8. METHOTREXATE [Suspect]
     Dosage: SEE IMAGE
     Route: 037
     Dates: start: 20050928
  9. CYCLOPHOSPHAMIDE [Suspect]
     Dosage: SEE IMAGE
     Route: 042
     Dates: start: 20040928
  10. CYTARABINE [Suspect]
     Dosage: SEE IMAGE
     Route: 042
     Dates: start: 20040928
  11. L-ASPARAGINASE [Suspect]
     Dosage: SEE IMAGE
     Route: 058
     Dates: start: 20040928, end: 20041005
  12. DEXAMETHASONE [Suspect]
     Dosage: SEE IMAGE
     Dates: start: 20040928
  13. G-CSF [Suspect]
     Dosage: SEE IMAGE
     Route: 058
     Dates: start: 20050928
  14. COTRIMOXAZOLE DS [Suspect]
     Dosage: SEE IMAGE
     Route: 048
     Dates: start: 20040928
  15. AZITHROMYCIN [Concomitant]
  16. CEFEPIME [Concomitant]
  17. FILGRASTIM [Concomitant]
  18. HUMULIN 70/30 [Concomitant]
  19. MAGNESIUM SULFATE [Concomitant]
  20. METRONIDAZOLE [Concomitant]
  21. ONDANSETRON [Concomitant]
  22. PANTOPRAZOLE [Concomitant]
  23. POTASSIUM [Concomitant]
  24. VANCOMYCIN [Concomitant]
  25. VORICONAZOLE [Concomitant]

REACTIONS (19)
  - ACUTE RESPIRATORY FAILURE [None]
  - ANAEMIA [None]
  - BLOOD BICARBONATE INCREASED [None]
  - BLOOD BILIRUBIN ABNORMAL [None]
  - BLOOD CREATININE INCREASED [None]
  - BLOOD PH DECREASED [None]
  - GENERAL PHYSICAL HEALTH DETERIORATION [None]
  - HYPOXIA [None]
  - LOSS OF CONSCIOUSNESS [None]
  - LUNG INFILTRATION [None]
  - NEUTROPENIA [None]
  - PCO2 INCREASED [None]
  - PNEUMONIA [None]
  - PNEUMONITIS [None]
  - PO2 INCREASED [None]
  - RESPIRATORY RATE DECREASED [None]
  - RESPIRATORY RATE INCREASED [None]
  - THROMBOCYTOPENIA [None]
  - WHITE BLOOD CELL COUNT DECREASED [None]
